FAERS Safety Report 8996910 (Version 1)
Quarter: 2012Q4

REPORT INFORMATION
  Report Type: Spontaneous
  Country: DK (occurrence: None)
  Receive Date: 20121220
  Receipt Date: 20121220
  Transmission Date: 20130627
  Serious: Yes (Hospitalization)
  Sender: FDA-Public Use
  Company Number: 2012-22015

PATIENT
  Age: 20 None
  Sex: Male

DRUGS (2)
  1. METHYLPHENIDATE HYDROCHLORIDE [Suspect]
     Indication: ADHD
  2. CHLORPROTHIXENE (CHLORPROTHIXENE) [Suspect]
     Indication: DRUG USE FOR UNKNOWN INDICATION

REACTIONS (5)
  - Acute myocardial infarction [None]
  - Pulmonary embolism [None]
  - Intentional drug misuse [None]
  - Overdose [None]
  - Chronic obstructive pulmonary disease [None]
